FAERS Safety Report 11055029 (Version 1)
Quarter: 2015Q2

REPORT INFORMATION
  Report Type: Spontaneous
  Country: US (occurrence: None)
  Receive Date: 20150421
  Receipt Date: 20150421
  Transmission Date: 20150821
  Serious: Yes (Life-Threatening, Disabling)
  Sender: FDA-Public Use
  Company Number: None

PATIENT
  Age: 35 Year
  Sex: Male
  Weight: 70.31 kg

DRUGS (2)
  1. TEGRETOL [Concomitant]
     Active Substance: CARBAMAZEPINE
  2. LYRICA [Suspect]
     Active Substance: PREGABALIN
     Indication: CONVULSION PROPHYLAXIS
     Dosage: 2 PILLS
     Route: 048

REACTIONS (5)
  - Depression [None]
  - Therapy cessation [None]
  - Suicidal ideation [None]
  - Disturbance in attention [None]
  - Amnesia [None]
